FAERS Safety Report 7119903-2 (Version None)
Quarter: 2010Q4

REPORT INFORMATION
  Report Type: 
  Country: None (occurrence: None)
  Receive Date: 20101123
  Receipt Date: 20101008
  Transmission Date: 20110411
  Serious: No
  Sender: FDA-Public Use
  Company Number: US-BRISTOL-MYERS SQUIBB COMPANY-15326440

PATIENT
  Age: 43 Year
  Sex: Male
  Weight: 81 kg

DRUGS (2)
  1. ONGLYZA [Suspect]
     Route: 048
     Dates: start: 20100101
  2. CLONAZEPAM [Suspect]

REACTIONS (1)
  - WEIGHT DECREASED [None]
